FAERS Safety Report 7429696-7 (Version None)
Quarter: 2011Q2

REPORT INFORMATION
  Report Type: 
  Country: None (occurrence: None)
  Receive Date: 20110421
  Receipt Date: 20110412
  Transmission Date: 20111010
  Serious: Yes (Disabling)
  Sender: FDA-Public Use
  Company Number: UA-JNJFOC-20110406503

PATIENT
  Sex: Male

DRUGS (3)
  1. ORFIRIL [Suspect]
     Indication: EPILEPSY
     Route: 065
  2. TOPAMAX [Suspect]
     Indication: EPILEPSY
     Route: 048
  3. DEPAKENE [Suspect]
     Indication: EPILEPSY
     Route: 065

REACTIONS (2)
  - HALLUCINATION, VISUAL [None]
  - HALLUCINATION, TACTILE [None]
